FAERS Safety Report 7168270-7 (Version None)
Quarter: 2010Q4

REPORT INFORMATION
  Report Type: 
  Country: None (occurrence: None)
  Receive Date: 20101216
  Receipt Date: 20101208
  Transmission Date: 20110411
  Serious: Yes (Other)
  Sender: FDA-Public Use
  Company Number: IE-GILEAD-E2B_00000920

PATIENT
  Sex: Female
  Weight: 96 kg

DRUGS (13)
  1. AMBRISENTAN [Suspect]
     Indication: PULMONARY ARTERIAL HYPERTENSION
     Route: 048
     Dates: start: 20101021, end: 20101026
  2. LYRICA [Concomitant]
     Indication: NEURALGIA
  3. MONTELUKAST [Concomitant]
     Indication: ASTHMA
     Route: 048
  4. SOLIFENACIN SUCCINATE [Concomitant]
     Indication: BLADDER SPASM
     Route: 048
  5. ZESTORETIC [Concomitant]
     Indication: HYPERTENSION
     Route: 048
  6. SYMBICORT [Concomitant]
     Route: 055
  7. SALBUTAMOL [Concomitant]
  8. FRUMIL [Concomitant]
     Route: 048
     Dates: start: 20101021
  9. TINZAPARIN [Concomitant]
     Route: 058
     Dates: start: 20101021, end: 20101103
  10. BOSENTAN [Concomitant]
     Route: 048
     Dates: start: 20101027
  11. SILDENAFIL [Concomitant]
     Route: 048
     Dates: start: 20101029
  12. PARACETAMOL [Concomitant]
     Route: 048
     Dates: start: 20101020, end: 20101103
  13. WARFARIN SODIUM [Concomitant]
     Route: 048
     Dates: start: 20101102

REACTIONS (3)
  - RASH [None]
  - VISUAL IMPAIRMENT [None]
  - VITREOUS DETACHMENT [None]
